FAERS Safety Report 7091451-8 (Version None)
Quarter: 2010Q4

REPORT INFORMATION
  Report Type: 
  Country: None (occurrence: None)
  Receive Date: 20101109
  Receipt Date: 20101026
  Transmission Date: 20110411
  Serious: Yes (Other)
  Sender: FDA-Public Use
  Company Number: PHHY2010US72247

PATIENT
  Sex: Female

DRUGS (4)
  1. RECLAST [Suspect]
     Indication: OSTEOPOROSIS
     Dosage: UNK
     Dates: start: 20100722
  2. CELEXA [Concomitant]
     Dosage: 20 MG
  3. CALCIUM [Concomitant]
  4. VITAMIN D [Concomitant]

REACTIONS (10)
  - ABDOMINAL DISCOMFORT [None]
  - AORTIC ANEURYSM [None]
  - CATARACT OPERATION [None]
  - FATIGUE [None]
  - HAEMOGLOBIN DECREASED [None]
  - HYPOAESTHESIA [None]
  - LOCAL SWELLING [None]
  - PAIN IN JAW [None]
  - PARAESTHESIA [None]
  - URINE OUTPUT DECREASED [None]
